FAERS Safety Report 4520717-8 (Version None)
Quarter: 2004Q4

REPORT INFORMATION
  Report Type: 
  Country: None (occurrence: None)
  Receive Date: 20041203
  Receipt Date: 20041103
  Transmission Date: 20050328
  Serious: Yes (Hospitalization)
  Sender: FDA-Public Use
  Company Number: STA-AE-04-MTX-540

PATIENT
  Age: 71 Year
  Sex: Female

DRUGS (3)
  1. RHEUMATREX [Suspect]
     Indication: RHEUMATOID ARTHRITIS
     Dosage: 6 MG 1X PER 1 WK, ORAL
     Route: 048
     Dates: start: 20040506, end: 20040920
  2. PREDNISOLONE [Concomitant]
  3. VOLTAREN-XR [Concomitant]

REACTIONS (4)
  - MELAENA [None]
  - MENTAL DISORDER [None]
  - RECTAL ULCER [None]
  - STRESS SYMPTOMS [None]
